FAERS Safety Report 20637724 (Version 1)
Quarter: 2022Q1

REPORT INFORMATION
  Report Type: Spontaneous
  Country: US (occurrence: None)
  Receive Date: 20220325
  Receipt Date: 20220325
  Transmission Date: 20220423
  Serious: Yes (Other)
  Sender: FDA-Public Use
  Company Number: US-Hikma Pharmaceuticals USA Inc.-US-H14001-22-00793

PATIENT
  Age: 11 Year
  Sex: Male

DRUGS (4)
  1. VALPROIC ACID [Suspect]
     Active Substance: VALPROIC ACID
     Indication: Epilepsy
     Dosage: UNKNOWN
     Route: 065
  2. ACETAZOLAMIDE [Suspect]
     Active Substance: ACETAZOLAMIDE
     Indication: Breath holding
     Dosage: UNKNOWN
     Route: 065
  3. DESIPRAMINE [Concomitant]
     Active Substance: DESIPRAMINE
     Indication: Breath holding
     Dosage: UNKNOWN
     Route: 065
  4. ZONISAMIDE [Concomitant]
     Active Substance: ZONISAMIDE
     Indication: Epilepsy
     Dosage: UNKNOWN
     Route: 065

REACTIONS (5)
  - Drug ineffective [Unknown]
  - General physical health deterioration [Unknown]
  - Cerebral atrophy [Unknown]
  - Cerebellar atrophy [Unknown]
  - Hyperammonaemic encephalopathy [Unknown]
